FAERS Safety Report 9790310 (Version 1)
Quarter: 2013Q4

REPORT INFORMATION
  Report Type: Report from Study
  Country: US (occurrence: US)
  Receive Date: 20131231
  Receipt Date: 20131231
  Transmission Date: 20140711
  Serious: Yes (Other)
  Sender: FDA-Public Use
  Company Number: US-SA-2013SA135433

PATIENT
  Sex: 0

DRUGS (3)
  1. PLERIXAFOR [Suspect]
     Indication: MYELODYSPLASTIC SYNDROME
     Dosage: GIVEN ON D3-D8
     Route: 058
  2. GRANULOCYTE COLONY-STIMULATING FACTOR NOS [Suspect]
     Indication: MYELODYSPLASTIC SYNDROME
     Route: 058
  3. AZACITIDINE [Suspect]
     Indication: MYELODYSPLASTIC SYNDROME
     Dosage: ON D3-D8
     Route: 058

REACTIONS (1)
  - Atrial fibrillation [Unknown]
